FAERS Safety Report 15082570 (Version 2)
Quarter: 2023Q2

REPORT INFORMATION
  Report Type: Other
  Country: US (occurrence: US)
  Receive Date: 20180628
  Receipt Date: 20230509
  Transmission Date: 20230721
  Serious: Yes (Hospitalization)
  Sender: FDA-Public Use
  Company Number: NAV000061

PATIENT
  Age: 76 Year
  Sex: Male

DRUGS (5)
  1. HYDRALAZINE [Suspect]
     Active Substance: HYDRALAZINE HYDROCHLORIDE
     Indication: Product used for unknown indication
     Dosage: 25 MG THREE TIMES DAILY OR 75MG/DAY
  2. LISINOPRIL [Concomitant]
     Active Substance: LISINOPRIL
     Indication: Product used for unknown indication
     Dosage: 2.5 MG DAILY
  3. CARVEDILOL HYDROCHLORIDE [Concomitant]
     Active Substance: CARVEDILOL HYDROCHLORIDE
     Indication: Product used for unknown indication
     Dosage: 6.25 MG TWICE DAILY
  4. ASPIRIN [Concomitant]
     Active Substance: ASPIRIN
     Indication: Product used for unknown indication
     Dosage: 81 MG DAILY
  5. ATORVASTATIN [Concomitant]
     Active Substance: ATORVASTATIN
     Indication: Product used for unknown indication
     Dosage: 80 MG DAILY

REACTIONS (2)
  - Renal vasculitis [Unknown]
  - Glomerulonephritis rapidly progressive [Unknown]
